FAERS Safety Report 8506393-8 (Version None)
Quarter: 2012Q3

REPORT INFORMATION
  Report Type: 
  Country: None (occurrence: None)
  Receive Date: 20120706
  Receipt Date: 20120706
  Transmission Date: 20120928
  Serious: Yes (Other)
  Sender: FDA-Public Use
  Company Number: None

PATIENT
  Sex: Male
  Weight: 27.2158 kg

DRUGS (2)
  1. QUETIAPINE [Suspect]
     Indication: AUTISM
     Dosage: 12.5 MG TID PO   ON SEROQUEL SINCE 9/2011  GENERIC 5/7/12
     Route: 048
     Dates: start: 20120507
  2. QUETIAPINE [Suspect]
     Indication: AFFECTIVE DISORDER
     Dosage: 12.5 MG TID PO   ON SEROQUEL SINCE 9/2011  GENERIC 5/7/12
     Route: 048
     Dates: start: 20120507

REACTIONS (2)
  - PRODUCT SUBSTITUTION ISSUE [None]
  - ABNORMAL BEHAVIOUR [None]
